FAERS Safety Report 6809561-6 (Version None)
Quarter: 2010Q2

REPORT INFORMATION
  Report Type: 
  Country: None (occurrence: None)
  Receive Date: 20100630
  Receipt Date: 20100617
  Transmission Date: 20101027
  Serious: Yes (Other)
  Sender: FDA-Public Use
  Company Number: PHHY2010JP36888

PATIENT
  Age: 66 Year
  Sex: Female

DRUGS (1)
  1. PAMIDRONATE DISODIUM [Suspect]
     Indication: METASTASES TO BONE
     Dosage: 45 MG IN 2 WEEKLY COURSES

REACTIONS (2)
  - FISTULA [None]
  - OSTEONECROSIS OF JAW [None]
